FAERS Safety Report 22214840 (Version 5)
Quarter: 2023Q2

REPORT INFORMATION
  Report Type: Report from Study
  Country: US (occurrence: US)
  Receive Date: 20230415
  Receipt Date: 20230518
  Transmission Date: 20230721
  Serious: No
  Sender: FDA-Public Use
  Company Number: US-002147023-NVSC2023US086675

PATIENT
  Age: 44 Year
  Sex: Female

DRUGS (2)
  1. KESIMPTA [Suspect]
     Active Substance: OFATUMUMAB
     Indication: Multiple sclerosis
     Dosage: 20 MG, QMO, (FIRST DOSE)
     Route: 058
     Dates: start: 20230404
  2. KESIMPTA [Suspect]
     Active Substance: OFATUMUMAB
     Dosage: 20 MG, QMO, (SECOND DOSE)
     Route: 058

REACTIONS (6)
  - Musculoskeletal disorder [Unknown]
  - Pain [Recovering/Resolving]
  - Nausea [Recovered/Resolved]
  - Chills [Recovering/Resolving]
  - Dizziness [Unknown]
  - Insomnia [Recovered/Resolved]

NARRATIVE: CASE EVENT DATE: 20230404
